FAERS Safety Report 8501460-7 (Version None)
Quarter: 2012Q3

REPORT INFORMATION
  Report Type: 
  Country: None (occurrence: None)
  Receive Date: 20120710
  Receipt Date: 20120702
  Transmission Date: 20120928
  Serious: Yes (Life-Threatening, Other)
  Sender: FDA-Public Use
  Company Number: GB-JNJFOC-20120701951

PATIENT
  Age: 49 Year
  Sex: Female

DRUGS (6)
  1. TOPIRAMATE [Suspect]
     Indication: PSYCHOTIC DISORDER
     Route: 048
     Dates: start: 20070101, end: 20120121
  2. CLOZARIL [Suspect]
     Route: 048
  3. CLOZARIL [Suspect]
     Indication: SCHIZOPHRENIA
     Route: 048
  4. CLOZARIL [Suspect]
     Route: 048
     Dates: start: 20060814, end: 20120109
  5. CLOZARIL [Suspect]
     Route: 048
     Dates: start: 20120112, end: 20120117
  6. MIRTAZAPINE [Suspect]
     Indication: DEPRESSIVE SYMPTOM
     Route: 048
     Dates: start: 20060101, end: 20120121

REACTIONS (11)
  - WHITE BLOOD CELL COUNT DECREASED [None]
  - INJURY [None]
  - NEUTROPHIL COUNT DECREASED [None]
  - PLATELET COUNT DECREASED [None]
  - SCRATCH [None]
  - TOOTH INFECTION [None]
  - EOSINOPHIL COUNT DECREASED [None]
  - ROAD TRAFFIC ACCIDENT [None]
  - NEUTROPENIA [None]
  - TOOTHACHE [None]
  - OFF LABEL USE [None]
